FAERS Safety Report 20046274 (Version 1)
Quarter: 2021Q4

REPORT INFORMATION
  Report Type: Spontaneous
  Country: TH (occurrence: TH)
  Receive Date: 20211109
  Receipt Date: 20211109
  Transmission Date: 20220303
  Serious: Yes (Other)
  Sender: FDA-Public Use
  Company Number: TH-AMGEN-THASP2021171979

PATIENT
  Age: 80 Year
  Sex: Female

DRUGS (7)
  1. PROLIA [Suspect]
     Active Substance: DENOSUMAB
     Indication: Osteoporosis
     Dosage: UNK
     Route: 065
  2. ATENOLOL [Concomitant]
     Active Substance: ATENOLOL
  3. HYDROCHLOROTHIAZIDE [Concomitant]
     Active Substance: HYDROCHLOROTHIAZIDE
  4. AMILORIDE [Concomitant]
     Active Substance: AMILORIDE
  5. SIMVASTATIN [Concomitant]
     Active Substance: SIMVASTATIN
  6. ASPIRIN CALCIUM [Concomitant]
     Active Substance: ASPIRIN CALCIUM
  7. VITAMIN D3 [Concomitant]
     Active Substance: CHOLECALCIFEROL

REACTIONS (3)
  - Ulna fracture [Recovering/Resolving]
  - Impaired healing [Unknown]
  - Anaemia [Unknown]
